FAERS Safety Report 9394406 (Version 1)
Quarter: 2013Q3

REPORT INFORMATION
  Report Type: Spontaneous
  Country: US (occurrence: US)
  Receive Date: 20130711
  Receipt Date: 20130711
  Transmission Date: 20140515
  Serious: Yes (Other)
  Sender: FDA-Public Use
  Company Number: US-JNJFOC-20130618861

PATIENT
  Age: 77 Year
  Sex: Female
  Weight: 72.58 kg

DRUGS (18)
  1. XARELTO [Suspect]
     Indication: OPTIC ISCHAEMIC NEUROPATHY
     Route: 048
     Dates: start: 20130321, end: 20130419
  2. XARELTO [Suspect]
     Indication: CEREBROVASCULAR ACCIDENT PROPHYLAXIS
     Route: 048
     Dates: start: 20130321, end: 20130419
  3. XARELTO [Suspect]
     Indication: ATRIAL FIBRILLATION
     Route: 048
     Dates: start: 20130321, end: 20130419
  4. NOVOLIN 70/30 [Concomitant]
     Indication: TYPE 2 DIABETES MELLITUS
     Dosage: 10 UNITS
     Route: 065
  5. NOVOLIN 70/30 [Concomitant]
     Indication: TYPE 2 DIABETES MELLITUS
     Dosage: 20 UNITS
     Route: 065
  6. NOVOLIN 70/30 [Concomitant]
     Indication: TYPE 2 DIABETES MELLITUS
     Dosage: 15 UNITS
     Route: 065
  7. NOVOLIN 70/30 [Concomitant]
     Indication: TYPE 2 DIABETES MELLITUS
     Dosage: 5 UNITS TWICE A DAY
     Route: 065
  8. COREG [Concomitant]
     Route: 065
  9. VASOTEC [Concomitant]
     Route: 065
  10. THYROXIN [Concomitant]
     Route: 065
  11. PLAVIX [Concomitant]
     Route: 065
  12. SIMVASTATIN [Concomitant]
     Route: 065
  13. GABAPENTIN [Concomitant]
     Route: 065
  14. XANAX [Concomitant]
     Route: 065
  15. SEROQUEL [Concomitant]
     Route: 065
  16. SERTRALINE [Concomitant]
     Route: 065
  17. FISH OIL [Concomitant]
     Route: 065
  18. ASPIRIN [Concomitant]
     Route: 065

REACTIONS (1)
  - Blood glucose increased [Unknown]
